FAERS Safety Report 8022439-8 (Version None)
Quarter: 2012Q1

REPORT INFORMATION
  Report Type: 
  Country: None (occurrence: None)
  Receive Date: 20120104
  Receipt Date: 20111229
  Transmission Date: 20120608
  Serious: Yes (Hospitalization)
  Sender: FDA-Public Use
  Company Number: FR-ABBOTT-11P-056-0876930-00

PATIENT
  Age: 17 Year
  Sex: Female

DRUGS (7)
  1. TETRAZEPAM [Concomitant]
     Indication: PRODUCT USED FOR UNKNOWN INDICATION
  2. ACETAMINOPHEN [Concomitant]
     Indication: PRODUCT USED FOR UNKNOWN INDICATION
  3. DOMPERIDONE [Concomitant]
     Indication: PRODUCT USED FOR UNKNOWN INDICATION
  4. DEPAKENE [Suspect]
     Indication: INTENTIONAL OVERDOSE
     Route: 048
     Dates: start: 20111106, end: 20111106
  5. DEPAKENE [Suspect]
     Indication: JUVENILE MYOCLONIC EPILEPSY
     Route: 048
     Dates: start: 20110401, end: 20111106
  6. LOPERAMIDE [Concomitant]
     Indication: PRODUCT USED FOR UNKNOWN INDICATION
  7. PHLOROGLUCINOL [Concomitant]
     Indication: PRODUCT USED FOR UNKNOWN INDICATION

REACTIONS (3)
  - DRUG LEVEL INCREASED [None]
  - SUICIDE ATTEMPT [None]
  - INTENTIONAL OVERDOSE [None]
